FAERS Safety Report 6089554-X (Version None)
Quarter: 2009Q1

REPORT INFORMATION
  Report Type: 
  Country: None (occurrence: None)
  Receive Date: 20090224
  Receipt Date: 20090216
  Transmission Date: 20090719
  Serious: Yes (Hospitalization)
  Sender: FDA-Public Use
  Company Number: FR-SANOFI-SYNTHELABO-F01200900075

PATIENT
  Sex: Female

DRUGS (9)
  1. MOPRAL [Concomitant]
  2. PROFENID [Concomitant]
  3. TOPALGIC [Concomitant]
  4. DAFALGAN [Concomitant]
  5. LASIX [Concomitant]
  6. KARDEGIC [Concomitant]
  7. ERLOTINIB [Suspect]
     Dosage: 150 MG
     Route: 048
     Dates: start: 20081020, end: 20081113
  8. BEVACIZUMAB [Suspect]
     Dosage: 450 MG
     Route: 042
     Dates: start: 20081110, end: 20081110
  9. OXALIPLATIN [Suspect]
     Indication: COLORECTAL CANCER
     Dosage: 170 MG
     Route: 042
     Dates: start: 20080917, end: 20080917

REACTIONS (1)
  - ARRHYTHMIA [None]
